FAERS Safety Report 11899696 (Version 2)
Quarter: 2016Q3

REPORT INFORMATION
  Report Type: Spontaneous
  Country: US (occurrence: US)
  Receive Date: 20160108
  Receipt Date: 20160805
  Transmission Date: 20161109
  Serious: No
  Sender: FDA-Public Use
  Company Number: US-ABBVIE-15P-163-1426391-00

PATIENT
  Sex: Female

DRUGS (7)
  1. INTERFERON [Suspect]
     Active Substance: INTERFERON
     Indication: PRODUCT USED FOR UNKNOWN INDICATION
     Route: 065
  2. PLAQUENIL [Concomitant]
     Active Substance: HYDROXYCHLOROQUINE SULFATE
     Indication: PRODUCT USED FOR UNKNOWN INDICATION
  3. VICODIN [Concomitant]
     Active Substance: ACETAMINOPHEN\HYDROCODONE BITARTRATE
     Indication: PRODUCT USED FOR UNKNOWN INDICATION
  4. RIBAVIRIN. [Suspect]
     Active Substance: RIBAVIRIN
     Indication: PRODUCT USED FOR UNKNOWN INDICATION
     Route: 065
  5. RIBAVIRIN. [Suspect]
     Active Substance: RIBAVIRIN
     Route: 065
  6. VIEKIRA PAK [Suspect]
     Active Substance: DASABUVIR\OMBITASVIR\PARITAPREVIR\RITONAVIR
     Indication: HEPATITIS C
     Route: 048
  7. HARVONI [Suspect]
     Active Substance: LEDIPASVIR\SOFOSBUVIR
     Indication: PRODUCT USED FOR UNKNOWN INDICATION
     Route: 065

REACTIONS (25)
  - Weight decreased [Recovered/Resolved]
  - Pain [Unknown]
  - Joint stiffness [Unknown]
  - Fatigue [Unknown]
  - Depression [Unknown]
  - Adverse drug reaction [Unknown]
  - Decreased appetite [Recovered/Resolved]
  - Suicidal ideation [Unknown]
  - Drug ineffective [Unknown]
  - Asthenia [Recovered/Resolved]
  - Abdominal pain [Unknown]
  - Vomiting [Recovered/Resolved]
  - Fatigue [Recovered/Resolved]
  - Tooth injury [Unknown]
  - Skin burning sensation [Unknown]
  - Weight increased [Recovered/Resolved]
  - Joint swelling [Unknown]
  - Nausea [Recovered/Resolved]
  - Asthenia [Recovering/Resolving]
  - Bedridden [Recovered/Resolved]
  - Memory impairment [Unknown]
  - Pain in extremity [Unknown]
  - Arthralgia [Unknown]
  - Anxiety [Unknown]
  - Arthropathy [Unknown]

NARRATIVE: CASE EVENT DATE: 20150911
